FAERS Safety Report 7786486-3 (Version None)
Quarter: 2011Q3

REPORT INFORMATION
  Report Type: 
  Country: None (occurrence: None)
  Receive Date: 20110929
  Receipt Date: 20110921
  Transmission Date: 20111222
  Serious: Yes (Hospitalization)
  Sender: FDA-Public Use
  Company Number: CA-PFIZER INC-2011135525

PATIENT
  Age: 63 Year
  Sex: Male
  Weight: 63.3 kg

DRUGS (7)
  1. IRINOTECAN HCL [Suspect]
     Indication: OESOPHAGEAL ADENOCARCINOMA
     Dosage: 310 MG, EVERY 3 WEEKS
     Route: 042
     Dates: start: 20110512
  2. CAPECITABINE [Suspect]
     Indication: OESOPHAGEAL ADENOCARCINOMA
     Dosage: 1800 MG, EVERY 3 WEEKS
     Route: 048
     Dates: start: 20110513
  3. OXALIPLATIN [Suspect]
     Indication: OESOPHAGEAL ADENOCARCINOMA
     Dosage: 195 MG, EVERY 3 WEEKS
     Route: 042
     Dates: start: 20110512
  4. BACLOFEN [Concomitant]
     Indication: HICCUPS
     Dosage: 10 MG, 3X/DAY, AS NEEDED
     Route: 048
     Dates: start: 20110518
  5. PREVACID [Concomitant]
     Indication: PROPHYLAXIS
     Dosage: 30 MG, UNK
     Dates: start: 20110506
  6. MELATONIN [Concomitant]
     Indication: INSOMNIA
     Dosage: 6 MG, UNK
     Dates: start: 20040101
  7. STEMETIL ^AVENTIS PHARMA^ [Concomitant]
     Indication: ANTIEMETIC SUPPORTIVE CARE
     Dosage: 10 MG, AS NEEDED
     Dates: start: 20110511

REACTIONS (1)
  - CANDIDIASIS [None]
